FAERS Safety Report 5731711-3 (Version None)
Quarter: 2008Q2

REPORT INFORMATION
  Report Type: 
  Country: None (occurrence: None)
  Receive Date: 20080506
  Receipt Date: 20080506
  Transmission Date: 20081010
  Serious: No
  Sender: FDA-Public Use
  Company Number: None

PATIENT
  Age: 6 Year
  Sex: Male
  Weight: 31.2982 kg

DRUGS (1)
  1. SINGULAIR [Suspect]
     Dosage: ONE CHEWABLE PILL ONCE PER DAY
     Route: 048

REACTIONS (7)
  - ANXIETY [None]
  - DEPRESSED MOOD [None]
  - DISTURBANCE IN ATTENTION [None]
  - FEELING ABNORMAL [None]
  - NIGHTMARE [None]
  - SCREAMING [None]
  - SELF ESTEEM DECREASED [None]
